FAERS Safety Report 6912576-0 (Version None)
Quarter: 2010Q3

REPORT INFORMATION
  Report Type: 
  Country: None (occurrence: None)
  Receive Date: 20100806
  Receipt Date: 20081022
  Transmission Date: 20110219
  Serious: Yes (Other)
  Sender: FDA-Public Use
  Company Number: US-PFIZER INC-2008060514

PATIENT
  Sex: Female

DRUGS (11)
  1. VFEND [Suspect]
     Indication: CANDIDIASIS
     Route: 048
     Dates: start: 20080618, end: 20080619
  2. VFEND [Suspect]
     Indication: CANDIDIASIS
     Route: 048
     Dates: start: 20080618, end: 20080706
  3. VFEND [Suspect]
     Route: 042
     Dates: start: 20080627
  4. ACETAMINOPHEN [Concomitant]
  5. ALBUTEROL [Concomitant]
  6. CYMBALTA [Concomitant]
  7. EPOETIN [Concomitant]
  8. FERROUS SULFATE [Concomitant]
  9. HALOPERIDOL [Concomitant]
  10. HEPARIN [Concomitant]
  11. LORAZEPAM [Concomitant]

REACTIONS (3)
  - OPTIC NEURITIS [None]
  - PAPILLOEDEMA [None]
  - VISUAL IMPAIRMENT [None]
